FAERS Safety Report 17235994 (Version 1)
Quarter: 2020Q1

REPORT INFORMATION
  Report Type: Spontaneous
  Country: US (occurrence: US)
  Receive Date: 20200106
  Receipt Date: 20200106
  Transmission Date: 20200409
  Serious: No
  Sender: FDA-Public Use
  Company Number: US-GLENMARK PHARMACEUTICALS-2019GMK044201

PATIENT

DRUGS (3)
  1. IMIQUIMOD CREAM USP, 5% [Suspect]
     Active Substance: IMIQUIMOD
     Indication: ANORECTAL HUMAN PAPILLOMA VIRUS INFECTION
     Dosage: UNK; ROUTE: INTRA-ANAL
     Route: 050
     Dates: start: 2019, end: 2019
  2. IMIQUIMOD CREAM USP, 5% [Suspect]
     Active Substance: IMIQUIMOD
     Dosage: UNK; ROUTE: INTRA-ANAL
     Route: 050
     Dates: start: 2019, end: 2019
  3. IMIQUIMOD CREAM USP, 5% [Suspect]
     Active Substance: IMIQUIMOD
     Dosage: UNK; ROUTE: PERI-ANAL
     Route: 050
     Dates: start: 2019, end: 2019

REACTIONS (3)
  - Off label use [Unknown]
  - Anorectal human papilloma virus infection [Recovered/Resolved]
  - Condition aggravated [Recovered/Resolved]

NARRATIVE: CASE EVENT DATE: 2019
